FAERS Safety Report 4385042-7 (Version None)
Quarter: 2004Q2

REPORT INFORMATION
  Report Type: 
  Country: None (occurrence: None)
  Receive Date: 20040625
  Receipt Date: 20040615
  Transmission Date: 20050107
  Serious: Yes (Life-Threatening, Hospitalization)
  Sender: FDA-Public Use
  Company Number: FR-GLAXOSMITHKLINE-B0335855A

PATIENT
  Age: 64 Year
  Sex: Female

DRUGS (2)
  1. AVANDIA [Suspect]
     Dosage: 4MG UNKNOWN
     Route: 048
     Dates: start: 20040324
  2. DIAMICRON [Concomitant]
     Dosage: 30MG UNKNOWN
     Route: 048

REACTIONS (9)
  - AORTIC VALVE INCOMPETENCE [None]
  - ASTHENIA [None]
  - ATRIAL FIBRILLATION [None]
  - CARDIAC FAILURE [None]
  - DILATATION ATRIAL [None]
  - DYSPNOEA [None]
  - FLUID RETENTION [None]
  - MITRAL VALVE INCOMPETENCE [None]
  - TACHYARRHYTHMIA [None]
